FAERS Safety Report 11865883 (Version 1)
Quarter: 2015Q4

REPORT INFORMATION
  Report Type: Spontaneous
  Country: US (occurrence: US)
  Receive Date: 20151223
  Receipt Date: 20151223
  Transmission Date: 20160305
  Serious: Yes (Other)
  Sender: FDA-Public Use
  Company Number: US-NOVOPROD-474713

PATIENT
  Age: 21 Year
  Sex: Female

DRUGS (2)
  1. NOVOSEVEN [Suspect]
     Active Substance: COAGULATION FACTOR VIIA RECOMBINANT HUMAN
     Dosage: 10 MG/KG, SINGLE
     Route: 042
     Dates: start: 20151216, end: 20151216
  2. NOVOSEVEN [Suspect]
     Active Substance: COAGULATION FACTOR VIIA RECOMBINANT HUMAN
     Indication: HAEMORRHAGE
     Dosage: 90 MG/KG, MIXED WITH 1000CC OF NORMAL SALINE GIVEN THROUGH CHEST TUBE VIA GRAVITY
     Route: 050
     Dates: start: 20151216, end: 20151216

REACTIONS (3)
  - Incorrect route of drug administration [Recovered/Resolved]
  - Embolic cerebral infarction [Not Recovered/Not Resolved]
  - Off label use [Unknown]

NARRATIVE: CASE EVENT DATE: 20151216
